FAERS Safety Report 9723917 (Version 1)
Quarter: 2013Q4

REPORT INFORMATION
  Report Type: Spontaneous
  Country: GB (occurrence: GB)
  Receive Date: 20131202
  Receipt Date: 20131202
  Transmission Date: 20140711
  Serious: Yes (Other)
  Sender: FDA-Public Use
  Company Number: GB-IPSEN BIOPHARMACEUTICALS, INC.-2013-4352

PATIENT
  Age: 30 Year
  Sex: Female

DRUGS (8)
  1. AZZALURE [Suspect]
     Indication: SKIN TEST
     Dosage: 1 UNITS
     Route: 030
     Dates: start: 20130830, end: 20130830
  2. AZZALURE [Suspect]
     Indication: OFF LABEL USE
  3. ESCITRALOPRAM [Concomitant]
     Indication: PRODUCT USED FOR UNKNOWN INDICATION
     Dosage: 15 MG
     Route: 065
  4. BETAHISTINE [Concomitant]
     Indication: PRODUCT USED FOR UNKNOWN INDICATION
     Dosage: 32 MG
     Route: 065
  5. AMITRIPTYLINE [Concomitant]
     Indication: PRODUCT USED FOR UNKNOWN INDICATION
     Dosage: 50 MG
     Route: 065
  6. RANITIDINE [Concomitant]
     Indication: PRODUCT USED FOR UNKNOWN INDICATION
     Dosage: 600 MG
     Route: 065
  7. DOMPERIDONE [Concomitant]
     Indication: PRODUCT USED FOR UNKNOWN INDICATION
     Dosage: 20 MG
     Route: 065
  8. TRAMADOL [Concomitant]
     Indication: PRODUCT USED FOR UNKNOWN INDICATION
     Route: 065

REACTIONS (5)
  - Burning sensation [Unknown]
  - Nausea [Unknown]
  - Wheezing [Unknown]
  - Swollen tongue [Unknown]
  - Tongue pruritus [Unknown]
